FAERS Safety Report 5385800-6 (Version None)
Quarter: 2007Q3

REPORT INFORMATION
  Report Type: 
  Country: None (occurrence: None)
  Receive Date: 20070710
  Receipt Date: 20061102
  Transmission Date: 20080115
  Serious: Yes (Hospitalization)
  Sender: FDA-Public Use
  Company Number: US-2006-033668

PATIENT
  Age: 16 Year
  Sex: Female

DRUGS (5)
  1. YASMIN [Suspect]
     Indication: POLYCYSTIC OVARIES
     Dosage: 1 TAB(S), 1X/DAY, ORAL
     Route: 048
     Dates: end: 20060821
  2. LEXAPRO [Suspect]
     Indication: ANXIETY
     Dosage: SEE IMAGE
     Route: 048
     Dates: start: 20060101, end: 20060701
  3. LEXAPRO [Suspect]
     Indication: ANXIETY
     Dosage: SEE IMAGE
     Route: 048
     Dates: start: 20060701
  4. ABILIFY [Concomitant]
  5. CARBATROL [Concomitant]

REACTIONS (2)
  - FOOT FRACTURE [None]
  - PULMONARY EMBOLISM [None]
